FAERS Safety Report 4714349-6 (Version None)
Quarter: 2005Q3

REPORT INFORMATION
  Report Type: 
  Country: None (occurrence: None)
  Receive Date: 20050712
  Receipt Date: 20050706
  Transmission Date: 20060218
  Serious: Yes (Life-Threatening)
  Sender: FDA-Public Use
  Company Number: 200511661GDS

PATIENT
  Age: 66 Year
  Sex: Male

DRUGS (3)
  1. ASPIRIN [Suspect]
     Indication: CEREBRAL ISCHAEMIA
     Dosage: 250 MG, TOTAL DAILY, ORAL
     Route: 048
     Dates: start: 20050303, end: 20050323
  2. ALOPURINOL [Concomitant]
  3. SPIRIVA [Concomitant]

REACTIONS (1)
  - CEREBRAL HAEMORRHAGE [None]
